FAERS Safety Report 6032617-5 (Version None)
Quarter: 2009Q1

REPORT INFORMATION
  Report Type: 
  Country: None (occurrence: None)
  Receive Date: 20090109
  Receipt Date: 20081231
  Transmission Date: 20090719
  Serious: Yes (Hospitalization, Other)
  Sender: FDA-Public Use
  Company Number: PHHY2008GB31942

PATIENT
  Sex: Female

DRUGS (1)
  1. CLOZARIL [Suspect]
     Indication: SCHIZOPHRENIA
     Dosage: 700 MG
     Route: 048
     Dates: start: 19950630

REACTIONS (4)
  - CHEMOTHERAPY [None]
  - LOWER RESPIRATORY TRACT INFECTION [None]
  - LUNG INJURY [None]
  - NON-HODGKIN'S LYMPHOMA [None]
